FAERS Safety Report 14445380 (Version 1)
Quarter: 2018Q1

REPORT INFORMATION
  Report Type: Spontaneous
  Country: US (occurrence: US)
  Receive Date: 20180126
  Receipt Date: 20180126
  Transmission Date: 20180509
  Serious: No
  Sender: FDA-Public Use
  Company Number: US-ABBVIE-17K-163-2022094-00

PATIENT
  Sex: Male
  Weight: 83.99 kg

DRUGS (5)
  1. HUMIRA [Suspect]
     Active Substance: ADALIMUMAB
     Indication: PRODUCT USED FOR UNKNOWN INDICATION
     Route: 058
     Dates: end: 2016
  2. XELJANZ [Suspect]
     Active Substance: TOFACITINIB CITRATE
     Route: 065
     Dates: start: 2017, end: 2017
  3. ENBREL [Suspect]
     Active Substance: ETANERCEPT
     Indication: PRODUCT USED FOR UNKNOWN INDICATION
     Route: 065
     Dates: start: 201612
  4. ORENCIA [Suspect]
     Active Substance: ABATACEPT
     Indication: PRODUCT USED FOR UNKNOWN INDICATION
     Route: 065
     Dates: start: 201705, end: 2017
  5. XELJANZ [Suspect]
     Active Substance: TOFACITINIB CITRATE
     Indication: PRODUCT USED FOR UNKNOWN INDICATION
     Dosage: EXTENDED RELEASE (XR)
     Route: 065
     Dates: start: 201702, end: 2017

REACTIONS (10)
  - Drug effect incomplete [Unknown]
  - Drug prescribing error [Unknown]
  - Adverse drug reaction [Unknown]
  - Musculoskeletal pain [Unknown]
  - Psoriasis [Not Recovered/Not Resolved]
  - Arthralgia [Unknown]
  - Drug ineffective [Unknown]
  - Peripheral swelling [Not Recovered/Not Resolved]
  - Hypoaesthesia [Not Recovered/Not Resolved]
  - Drug effect incomplete [Unknown]

NARRATIVE: CASE EVENT DATE: 2016
